FAERS Safety Report 9834168 (Version 1)
Quarter: 2014Q1

REPORT INFORMATION
  Report Type: Spontaneous
  Country: GB (occurrence: MA)
  Receive Date: 20140122
  Receipt Date: 20140122
  Transmission Date: 20141002
  Serious: Yes (Death)
  Sender: FDA-Public Use
  Company Number: GB-SA-2014SA007882

PATIENT
  Age: 17 Year
  Sex: Male
  Weight: 127 kg

DRUGS (1)
  1. DDAVP [Suspect]
     Indication: ENURESIS
     Route: 065

REACTIONS (2)
  - Circulatory collapse [Fatal]
  - Heat exhaustion [Fatal]
